FAERS Safety Report 8002169-9 (Version None)
Quarter: 2011Q4

REPORT INFORMATION
  Report Type: 
  Country: None (occurrence: None)
  Receive Date: 20111222
  Receipt Date: 20111213
  Transmission Date: 20120403
  Serious: Yes (Hospitalization, Disabling, Other)
  Sender: FDA-Public Use
  Company Number: DE-PFIZER INC-2011186039

PATIENT
  Age: 75 Year
  Sex: Female

DRUGS (8)
  1. VOMEX [Concomitant]
     Dosage: AS NEEDED
     Dates: start: 20110805
  2. METOCLOPRAMIDE HYDROCHLORIDE [Concomitant]
     Dosage: 20 GTT, 3X/DAY
  3. PANTOPRAZOLE SODIUM [Concomitant]
     Dosage: 40 MG, UNK
  4. SIMVASTATIN [Concomitant]
     Dosage: 20 MG, 1X/DAY
  5. SUTENT [Suspect]
     Indication: RENAL CELL CARCINOMA
     Dosage: 50 MG, 1X/DAY
     Dates: start: 20110809
  6. DELIX PLUS [Concomitant]
     Dosage: 30 MG, UNK
  7. LEVOTHYROXINE SODIUM [Concomitant]
     Dosage: 75 UG, 1X/DAY
  8. NOVAMINOSULFON [Concomitant]
     Dosage: 20 GTT, 4X/DAY

REACTIONS (3)
  - CARDIAC FAILURE [None]
  - GUILLAIN-BARRE SYNDROME [None]
  - PNEUMONIA [None]
